FAERS Safety Report 4414448-2 (Version None)
Quarter: 2004Q3

REPORT INFORMATION
  Report Type: 
  Country: None (occurrence: None)
  Receive Date: 20040729
  Receipt Date: 20040714
  Transmission Date: 20050211
  Serious: No
  Sender: FDA-Public Use
  Company Number: 2004AP03205

PATIENT
  Age: 50 Year
  Sex: Female

DRUGS (10)
  1. NOLVADEX [Suspect]
     Indication: BREAST CANCER
     Dosage: 20 MG DAILY PO
     Route: 048
     Dates: start: 20040320, end: 20040517
  2. MARCAINE [Suspect]
     Indication: EPIDURAL ANAESTHESIA
     Dosage: 120 MG DAILY ED
     Route: 008
     Dates: start: 20040401, end: 20040419
  3. VALTREX [Suspect]
     Indication: HERPES ZOSTER
     Dosage: 3000 MG DAILY PO
     Route: 048
     Dates: start: 20040401, end: 20040410
  4. CALONAL [Suspect]
     Indication: HERPES ZOSTER
     Dosage: 1200 MG DAILY PO
     Route: 048
     Dates: start: 20040401, end: 20040413
  5. LEUPROLIDE ACETATE [Suspect]
     Indication: BREAST CANCER
     Dosage: 3.75 MG DAILY SQ
     Dates: start: 20040401, end: 20040506
  6. NORITREN [Suspect]
     Indication: HERPES ZOSTER
     Dosage: 20 MG DAILY PO
     Route: 048
     Dates: start: 20040408, end: 20040426
  7. NORITREN [Suspect]
     Indication: HERPES ZOSTER
     Dosage: 40 MG DAILY PO
     Route: 048
     Dates: start: 20040427, end: 20040517
  8. VOLTAREN [Concomitant]
  9. LENDORM [Concomitant]
  10. LOXONIN [Concomitant]

REACTIONS (3)
  - JAUNDICE [None]
  - LIVER DISORDER [None]
  - URTICARIA [None]
